FAERS Safety Report 5413195-8 (Version None)
Quarter: 2007Q3

REPORT INFORMATION
  Report Type: 
  Country: None (occurrence: None)
  Receive Date: 20070814
  Receipt Date: 20070803
  Transmission Date: 20080115
  Serious: Yes (Hospitalization)
  Sender: FDA-Public Use
  Company Number: PHHO2007CA12952

PATIENT
  Age: 63 Year
  Sex: Female
  Weight: 102 kg

DRUGS (3)
  1. MYCOPHENOLATE MOFETIL COMP-MYC+ [Suspect]
     Indication: HEART TRANSPLANT
     Dosage: 1000 MG, BID
     Route: 048
     Dates: start: 20050705
  2. CYCLOSPORINE [Suspect]
     Indication: HEART TRANSPLANT
  3. DIOVAN [Concomitant]

REACTIONS (2)
  - BALANCE DISORDER [None]
  - DISEASE PROGRESSION [None]
